FAERS Safety Report 10438377 (Version 1)
Quarter: 2014Q3

REPORT INFORMATION
  Report Type: Spontaneous
  Country: FR (occurrence: FR)
  Receive Date: 20140908
  Receipt Date: 20140908
  Transmission Date: 20150326
  Serious: Yes (Other)
  Sender: FDA-Public Use
  Company Number: PHHY2014FR110024

PATIENT
  Age: 52 Year
  Sex: Male

DRUGS (2)
  1. EZETROL [Concomitant]
     Active Substance: EZETIMIBE
     Dosage: UNK UKN, UNK
  2. EXFORGE [Suspect]
     Active Substance: AMLODIPINE BESYLATE\VALSARTAN
     Dosage: UNK UKN, UNK
     Route: 048
     Dates: end: 20140710

REACTIONS (2)
  - Photosensitivity reaction [Recovered/Resolved]
  - Eczema [Recovered/Resolved]

NARRATIVE: CASE EVENT DATE: 20140601
